FAERS Safety Report 9702703 (Version 3)
Quarter: 2014Q1

REPORT INFORMATION
  Report Type: Spontaneous
  Country: JP (occurrence: None)
  Receive Date: 20131120
  Receipt Date: 20140108
  Transmission Date: 20141002
  Serious: Yes (Life-Threatening, Hospitalization)
  Sender: FDA-Public Use
  Company Number: 2013-003636

PATIENT
  Age: 81 Year
  Sex: Female

DRUGS (2)
  1. ACTONEL [Suspect]
     Indication: OSTEITIS DEFORMANS
     Route: 048
     Dates: start: 20120929, end: 20121124
  2. ACTONEL [Suspect]
     Indication: OSTEITIS DEFORMANS
     Route: 048
     Dates: start: 20120929, end: 20121124

REACTIONS (9)
  - Hepatic function abnormal [None]
  - Renal impairment [None]
  - Blood alkaline phosphatase increased [None]
  - Blood lactate dehydrogenase increased [None]
  - Aspartate aminotransferase increased [None]
  - Gamma-glutamyltransferase increased [None]
  - Alanine aminotransferase increased [None]
  - Blood urea increased [None]
  - Blood creatinine increased [None]
